FAERS Safety Report 9698064 (Version 4)
Quarter: 2015Q1

REPORT INFORMATION
  Report Type: Spontaneous
  Country: US (occurrence: US)
  Receive Date: 20131120
  Receipt Date: 20150327
  Transmission Date: 20150721
  Serious: Yes (Life-Threatening, Hospitalization)
  Sender: FDA-Public Use
  Company Number: US-BAYER-2013-139491

PATIENT
  Age: 26 Year
  Sex: Female
  Weight: 72.56 kg

DRUGS (1)
  1. MIRENA [Suspect]
     Active Substance: LEVONORGESTREL
     Indication: CONTRACEPTION
     Dosage: 20 MCG/24HR, CONT
     Route: 015
     Dates: start: 20070606, end: 20090122

REACTIONS (15)
  - Abdominal pain [Not Recovered/Not Resolved]
  - Drug ineffective [None]
  - Ectopic pregnancy with contraceptive device [None]
  - Vaginal haemorrhage [None]
  - Ovarian cyst [Not Recovered/Not Resolved]
  - Ruptured ectopic pregnancy [None]
  - Anhedonia [None]
  - Injury [None]
  - General physical health deterioration [None]
  - Emotional distress [None]
  - Abdominal pain lower [None]
  - Anxiety [None]
  - Internal haemorrhage [None]
  - Device defective [None]
  - Menorrhagia [None]

NARRATIVE: CASE EVENT DATE: 200812
